FAERS Safety Report 6191684-9 (Version None)
Quarter: 2009Q2

REPORT INFORMATION
  Report Type: 
  Country: None (occurrence: None)
  Receive Date: 20090515
  Receipt Date: 20090513
  Transmission Date: 20091009
  Serious: Yes (Life-Threatening, Other)
  Sender: FDA-Public Use
  Company Number: PHHY2009ES18390

PATIENT
  Age: 41 Year
  Sex: Female

DRUGS (5)
  1. CYCLOSPORINE [Suspect]
     Indication: BONE MARROW TRANSPLANT
  2. METHOTREXATE [Suspect]
     Indication: PROPHYLAXIS AGAINST GRAFT VERSUS HOST DISEASE
  3. BUSULFAN [Concomitant]
     Indication: BONE MARROW CONDITIONING REGIMEN
  4. CYCLOPHOSPHAMIDE [Concomitant]
     Indication: BONE MARROW CONDITIONING REGIMEN
  5. NEUPOGEN [Concomitant]

REACTIONS (16)
  - BLOOD ALBUMIN DECREASED [None]
  - COUGH [None]
  - ENDOTRACHEAL INTUBATION [None]
  - ENGRAFTMENT SYNDROME [None]
  - EPISTAXIS [None]
  - HAEMATURIA [None]
  - HAEMOPTYSIS [None]
  - LUNG INFILTRATION [None]
  - MECHANICAL VENTILATION [None]
  - METRORRHAGIA [None]
  - MUCOSAL INFLAMMATION [None]
  - PARENTERAL NUTRITION [None]
  - PYREXIA [None]
  - RESPIRATORY FAILURE [None]
  - THROMBOCYTOPENIA [None]
  - WEIGHT INCREASED [None]
